FAERS Safety Report 19067058 (Version 2)
Quarter: 2021Q2

REPORT INFORMATION
  Report Type: Spontaneous
  Country: CA (occurrence: CA)
  Receive Date: 20210329
  Receipt Date: 20210406
  Transmission Date: 20210717
  Serious: Yes (Other)
  Sender: FDA-Public Use
  Company Number: CA-JNJFOC-20210346358

PATIENT
  Age: 65 Year
  Sex: Female

DRUGS (4)
  1. ACETAMINOPHEN. [Concomitant]
     Active Substance: ACETAMINOPHEN
     Indication: PREMEDICATION
  2. HYDROXYCHLOROQUINE [Concomitant]
     Active Substance: HYDROXYCHLOROQUINE
     Route: 048
  3. REMICADE [Suspect]
     Active Substance: INFLIXIMAB
     Indication: RHEUMATOID ARTHRITIS
     Route: 042
  4. HYDROXYCHLOROQUINE SULFATE. [Concomitant]
     Active Substance: HYDROXYCHLOROQUINE SULFATE

REACTIONS (18)
  - Weight increased [Not Recovered/Not Resolved]
  - Toothache [Not Recovered/Not Resolved]
  - Blood pressure diastolic increased [Not Recovered/Not Resolved]
  - Back pain [Not Recovered/Not Resolved]
  - Drug ineffective [Not Recovered/Not Resolved]
  - Inappropriate schedule of product administration [Not Recovered/Not Resolved]
  - Tooth infection [Not Recovered/Not Resolved]
  - Muscular weakness [Not Recovered/Not Resolved]
  - Product use issue [Not Recovered/Not Resolved]
  - Lethargy [Not Recovered/Not Resolved]
  - Off label use [Not Recovered/Not Resolved]
  - Synovitis [Not Recovered/Not Resolved]
  - Psoriasis [Not Recovered/Not Resolved]
  - Pain in extremity [Not Recovered/Not Resolved]
  - Neck pain [Not Recovered/Not Resolved]
  - Blood pressure fluctuation [Not Recovered/Not Resolved]
  - Condition aggravated [Not Recovered/Not Resolved]
  - Headache [Not Recovered/Not Resolved]
